FAERS Safety Report 18181324 (Version 1)
Quarter: 2020Q3

REPORT INFORMATION
  Report Type: Spontaneous
  Country: US (occurrence: US)
  Receive Date: 20200821
  Receipt Date: 20200821
  Transmission Date: 20201103
  Serious: Yes (Other)
  Sender: FDA-Public Use
  Company Number: US-ASTRAZENECA-2020SF04307

PATIENT
  Age: 566 Month
  Sex: Male
  Weight: 90.7 kg

DRUGS (7)
  1. NEXIUM [Suspect]
     Active Substance: ESOMEPRAZOLE MAGNESIUM
     Indication: GASTROOESOPHAGEAL REFLUX DISEASE
     Route: 048
     Dates: start: 2018, end: 2019
  2. NEXIUM 24HR [Suspect]
     Active Substance: ESOMEPRAZOLE MAGNESIUM
     Indication: GASTROOESOPHAGEAL REFLUX DISEASE
     Dosage: 20MG EVERY 3RD OR 4TH DAY
     Route: 048
  3. LORAZEPAM. [Concomitant]
     Active Substance: LORAZEPAM
     Indication: ANXIETY
     Dosage: AS REQUIRED
     Route: 048
     Dates: start: 202007, end: 202007
  4. LEXAPRO [Concomitant]
     Active Substance: ESCITALOPRAM OXALATE
     Indication: ANXIETY
     Route: 048
     Dates: start: 202007
  5. NEXIUM [Suspect]
     Active Substance: ESOMEPRAZOLE MAGNESIUM
     Indication: CHOKING SENSATION
     Route: 048
     Dates: start: 2018, end: 2019
  6. NEXIUM 24HR [Suspect]
     Active Substance: ESOMEPRAZOLE MAGNESIUM
     Indication: GASTROOESOPHAGEAL REFLUX DISEASE
     Route: 048
     Dates: start: 2019
  7. NEXIUM 24HR [Suspect]
     Active Substance: ESOMEPRAZOLE MAGNESIUM
     Indication: GASTROOESOPHAGEAL REFLUX DISEASE
     Route: 048

REACTIONS (11)
  - SARS-CoV-2 test negative [Unknown]
  - Vitamin B12 decreased [Unknown]
  - Panic attack [Unknown]
  - Depression [Unknown]
  - Gastrooesophageal reflux disease [Unknown]
  - Ageusia [Not Recovered/Not Resolved]
  - Blood magnesium decreased [Unknown]
  - Anosmia [Not Recovered/Not Resolved]
  - Blood calcium decreased [Unknown]
  - Dyspnoea [Unknown]
  - Insurance issue [Unknown]

NARRATIVE: CASE EVENT DATE: 202003
